APPROVED DRUG PRODUCT: PROPOFOL
Active Ingredient: PROPOFOL
Strength: 10MG/ML
Dosage Form/Route: INJECTABLE;INJECTION
Application: A206408 | Product #001 | TE Code: AB
Applicant: AVET LIFESCIENCES LTD
Approved: Oct 12, 2021 | RLD: No | RS: No | Type: RX